FAERS Safety Report 13564742 (Version 2)
Quarter: 2017Q2

REPORT INFORMATION
  Report Type: Spontaneous
  Country: JP (occurrence: JP)
  Receive Date: 20170519
  Receipt Date: 20170531
  Transmission Date: 20170830
  Serious: Yes (Other)
  Sender: FDA-Public Use
  Company Number: JP-BAUSCH-BL-2017-016493

PATIENT
  Age: 60 Year
  Sex: Female

DRUGS (4)
  1. VISUDYNE [Suspect]
     Active Substance: VERTEPORFIN
     Route: 042
     Dates: start: 2007
  2. VISUDYNE [Suspect]
     Active Substance: VERTEPORFIN
     Indication: AGE-RELATED MACULAR DEGENERATION
     Route: 042
     Dates: start: 20061117
  3. VISUDYNE [Suspect]
     Active Substance: VERTEPORFIN
     Route: 042
     Dates: start: 2015
  4. EYLEA [Suspect]
     Active Substance: AFLIBERCEPT
     Indication: PRODUCT USED FOR UNKNOWN INDICATION
     Dosage: , FOR 9 TIMES
     Route: 050
     Dates: start: 2016

REACTIONS (6)
  - Age-related macular degeneration [Unknown]
  - Visual acuity reduced [Unknown]
  - Optic nerve cupping [Unknown]
  - Disease progression [Unknown]
  - Open angle glaucoma [Unknown]
  - Choroidal neovascularisation [Unknown]
